FAERS Safety Report 8833972 (Version 1)
Quarter: 2012Q4

REPORT INFORMATION
  Report Type: 
  Country: US (occurrence: US)
  Receive Date: 20121010
  Receipt Date: 20121010
  Transmission Date: 20130627
  Serious: No
  Sender: FDA-Public Use
  Company Number: US-009507513-1209USA008993

PATIENT
  Age: 77 Year
  Sex: Male

DRUGS (5)
  1. AZASITE [Suspect]
     Dosage: 1 one drop in each eye twice
     Route: 047
     Dates: start: 20120913
  2. PREDNISONE [Concomitant]
  3. OFLOXACIN [Concomitant]
  4. KETOROLAC TROMETHAMINE [Concomitant]
  5. TRAVATAN Z [Concomitant]

REACTIONS (1)
  - Ocular discomfort [Recovering/Resolving]
